FAERS Safety Report 19494545 (Version 2)
Quarter: 2021Q3

REPORT INFORMATION
  Report Type: Report from Study
  Country: CR (occurrence: CR)
  Receive Date: 20210705
  Receipt Date: 20210814
  Transmission Date: 20211014
  Serious: Yes (Other)
  Sender: FDA-Public Use
  Company Number: PHHY2017CR098364

PATIENT
  Age: 63 Year
  Sex: Female

DRUGS (6)
  1. CO?DIOVAN [Suspect]
     Active Substance: HYDROCHLOROTHIAZIDE\VALSARTAN
     Dosage: 80/12.5 MG
     Route: 065
  2. DIOVAN [Suspect]
     Active Substance: VALSARTAN
     Indication: HYPERTENSION
     Dosage: 160 MG (START DATE: 1 MONTH AGO)
     Route: 065
  3. CO?DIOVAN [Suspect]
     Active Substance: HYDROCHLOROTHIAZIDE\VALSARTAN
     Indication: HYPERTENSION
     Dosage: 1 DF (VALSARTAN 80 MG, HYDROCHLOROTHIAZIDE 12.5 MG) 7 YEARS AGO
     Route: 065
  4. CO?DIOVAN [Suspect]
     Active Substance: HYDROCHLOROTHIAZIDE\VALSARTAN
     Dosage: 2 DF (VALSARTAN 80 MG, HYDROCHLOROTHIAZIDE 12.5 MG)
     Route: 065
  5. CO?DIOVAN [Suspect]
     Active Substance: HYDROCHLOROTHIAZIDE\VALSARTAN
     Dosage: 160/12.5 MG (STOP DATE: 1 MONTH AGO)
     Route: 065
  6. CO?DIOVAN [Suspect]
     Active Substance: HYDROCHLOROTHIAZIDE\VALSARTAN
     Dosage: 160/12.5 MG
     Route: 065

REACTIONS (7)
  - Blood pressure increased [Unknown]
  - Pain in extremity [Not Recovered/Not Resolved]
  - Intraocular pressure increased [Unknown]
  - Incorrect dose administered [Unknown]
  - Drug ineffective [Unknown]
  - Cataract [Unknown]
  - Blood pressure fluctuation [Unknown]
